FAERS Safety Report 8860444 (Version 2)
Quarter: 2012Q4

REPORT INFORMATION
  Report Type: 
  Country: BE (occurrence: BE)
  Receive Date: 20121025
  Receipt Date: 20121102
  Transmission Date: 20130627
  Serious: Yes (Other)
  Sender: FDA-Public Use
  Company Number: BE-JNJFOC-20121009327

PATIENT
  Age: 28 Year
  Sex: Male

DRUGS (2)
  1. SINUTAB UNSPECIFIED [Suspect]
     Indication: SINUS DISORDER
     Dosage: 1/2 tablet
     Route: 048
  2. SINUTAB UNSPECIFIED [Suspect]
     Indication: SINUS DISORDER
     Route: 048

REACTIONS (3)
  - Epilepsy [Unknown]
  - Discomfort [Unknown]
  - Palpitations [Unknown]
